FAERS Safety Report 17580072 (Version 1)
Quarter: 2020Q1

REPORT INFORMATION
  Report Type: Spontaneous
  Country: US (occurrence: US)
  Receive Date: 20200324
  Receipt Date: 20200324
  Transmission Date: 20200409
  Serious: Yes (Life-Threatening, Disabling)
  Sender: FDA-Public Use
  Company Number: None

PATIENT
  Age: 25 Year
  Sex: Female
  Weight: 56.25 kg

DRUGS (1)
  1. GADAVIST [Suspect]
     Active Substance: GADOBUTROL
     Indication: X-RAY WITH CONTRAST
     Route: 058

REACTIONS (11)
  - Drug screen positive [None]
  - Amnesia [None]
  - Shock [None]
  - Quality of life decreased [None]
  - Toxicity to various agents [None]
  - Nephrogenic systemic fibrosis [None]
  - Migraine [None]
  - Head discomfort [None]
  - Nausea [None]
  - Pain [None]
  - Skin lesion [None]

NARRATIVE: CASE EVENT DATE: 20170926
